FAERS Safety Report 16053873 (Version 1)
Quarter: 2019Q1

REPORT INFORMATION
  Report Type: Spontaneous
  Country: IE (occurrence: IE)
  Receive Date: 20190308
  Receipt Date: 20190308
  Transmission Date: 20190418
  Serious: Yes (Other)
  Sender: FDA-Public Use
  Company Number: IE-MYLANLABS-2019M1021576

PATIENT
  Sex: Male

DRUGS (1)
  1. SOTOGER 80 MG TABLETS [Suspect]
     Active Substance: SOTALOL HYDROCHLORIDE
     Indication: PRODUCT USED FOR UNKNOWN INDICATION
     Dosage: 80 MILLIGRAM, BID
     Route: 048

REACTIONS (3)
  - Cardiac dysfunction [Unknown]
  - Atrial fibrillation [Unknown]
  - Product substitution issue [Unknown]
